FAERS Safety Report 10195872 (Version 2)
Quarter: 2014Q3

REPORT INFORMATION
  Report Type: Spontaneous
  Country: IT (occurrence: None)
  Receive Date: 20140522
  Receipt Date: 20140822
  Transmission Date: 20150326
  Serious: Yes (Death)
  Sender: FDA-Public Use
  Company Number: 2342788

PATIENT
  Age: 44 Year
  Sex: Female

DRUGS (3)
  1. LEVOXACIN [Concomitant]
     Active Substance: LEVOFLOXACIN
  2. NOXAFIL [Concomitant]
     Active Substance: POSACONAZOLE
  3. CYTARABINE. [Suspect]
     Active Substance: CYTARABINE
     Indication: ACUTE MYELOID LEUKAEMIA
     Dosage: (CYCLIC) (NOT OTHERWISE SPECIFIED)
     Route: 042
     Dates: start: 20140401, end: 20140405

REACTIONS (3)
  - Enterocolitis [None]
  - Hepatotoxicity [None]
  - Gastrointestinal toxicity [None]

NARRATIVE: CASE EVENT DATE: 20140413
